FAERS Safety Report 23789149 (Version 1)
Quarter: 2024Q2

REPORT INFORMATION
  Report Type: Spontaneous
  Country: US (occurrence: US)
  Receive Date: 20240426
  Receipt Date: 20240426
  Transmission Date: 20240716
  Serious: Yes (Hospitalization)
  Sender: FDA-Public Use
  Company Number: US-BRISTOL-MYERS SQUIBB COMPANY-2024-062200

PATIENT
  Age: 80 Year
  Sex: Male

DRUGS (1)
  1. REVLIMID [Suspect]
     Active Substance: LENALIDOMIDE
     Indication: Plasma cell myeloma
     Dosage: DOSE : 15 MG;     FREQ : 15 MG, 1 CAPSULE A DAY 21 DAYS ON AND 7 DAYS OFF
     Route: 048

REACTIONS (3)
  - General physical health deterioration [Unknown]
  - Product use issue [Unknown]
  - Therapy interrupted [Unknown]
